FAERS Safety Report 19491115 (Version 1)
Quarter: 2021Q3

REPORT INFORMATION
  Report Type: Spontaneous
  Country: DE (occurrence: DE)
  Receive Date: 20210705
  Receipt Date: 20210705
  Transmission Date: 20211014
  Serious: Yes (Hospitalization, Other)
  Sender: FDA-Public Use
  Company Number: DE-TEVA-2021-DE-1928340

PATIENT
  Age: 79 Year
  Sex: Male

DRUGS (4)
  1. TORASEMID [Suspect]
     Active Substance: TORSEMIDE
     Dosage: 5 MILLIGRAM DAILY; 1?0?0?0
     Route: 048
  2. MEMANTINE. [Concomitant]
     Active Substance: MEMANTINE
     Dosage: 20 MILLIGRAM DAILY; 1?0?0?0
     Route: 048
  3. TAMSULOSIN [Concomitant]
     Active Substance: TAMSULOSIN
     Dosage: .4 MILLIGRAM DAILY; 1?0?0?0
     Route: 048
  4. PIPAMPERONE [Concomitant]
     Active Substance: PIPAMPERONE
     Dosage: 40 MILLIGRAM DAILY;  0?0?0?1
     Route: 048

REACTIONS (7)
  - Tachycardia [Unknown]
  - Dehydration [Unknown]
  - Diarrhoea [Unknown]
  - Vomiting [Unknown]
  - Dementia [Unknown]
  - Aphasia [Unknown]
  - Nausea [Unknown]
